FAERS Safety Report 8268467-9 (Version None)
Quarter: 2012Q2

REPORT INFORMATION
  Report Type: 
  Country: None (occurrence: None)
  Receive Date: 20120409
  Receipt Date: 20120405
  Transmission Date: 20120825
  Serious: Yes (Hospitalization, Other)
  Sender: FDA-Public Use
  Company Number: PHHO2009IT12806

PATIENT
  Sex: Female
  Weight: 80 kg

DRUGS (3)
  1. FEDRA [Concomitant]
  2. FTY [Suspect]
     Indication: MULTIPLE SCLEROSIS
     Dosage: CODE NOT BROKEN
     Route: 048
     Dates: start: 20080625, end: 20091015
  3. LEVOTHYROXINE SODIUM [Concomitant]
     Dosage: 75 MG, UNK
     Route: 048

REACTIONS (3)
  - CONCOMITANT DISEASE PROGRESSION [None]
  - THYROID CANCER [None]
  - THYROID NEOPLASM [None]
